FAERS Safety Report 5679906-1 (Version None)
Quarter: 2008Q1

REPORT INFORMATION
  Report Type: 
  Country: None (occurrence: None)
  Receive Date: 20080324
  Receipt Date: 20080310
  Transmission Date: 20080703
  Serious: Yes (Hospitalization)
  Sender: FDA-Public Use
  Company Number: 2008AL001499

PATIENT
  Age: 35 Year
  Sex: Female

DRUGS (3)
  1. CITALOPRAM HYDROBROMIDE [Suspect]
     Indication: SUICIDE ATTEMPT
     Dosage: 560 MG; X1; PO
     Route: 048
  2. SERTRALINE HYDROCHLORIDE [Suspect]
     Indication: SUICIDE ATTEMPT
     Dosage: 560 MG;X1; PO
     Route: 048
  3. MOCLOBEMIDE [Concomitant]

REACTIONS (5)
  - BLOOD PH DECREASED [None]
  - MULTIPLE DRUG OVERDOSE INTENTIONAL [None]
  - MYOGLOBIN BLOOD INCREASED [None]
  - SEROTONIN SYNDROME [None]
  - SUICIDE ATTEMPT [None]
